FAERS Safety Report 18147176 (Version 1)
Quarter: 2020Q3

REPORT INFORMATION
  Report Type: Spontaneous
  Country: DE (occurrence: DE)
  Receive Date: 20200814
  Receipt Date: 20200814
  Transmission Date: 20201103
  Serious: Yes (Other)
  Sender: FDA-Public Use
  Company Number: DE-AUROBINDO-AUR-APL-2020-038155

PATIENT
  Age: 73 Year
  Sex: Male

DRUGS (1)
  1. AMIODARONE [Suspect]
     Active Substance: AMIODARONE
     Indication: PRODUCT USED FOR UNKNOWN INDICATION
     Dosage: 200 MILLIGRAM, ONCE A DAY
     Route: 065

REACTIONS (6)
  - Polyneuropathy [Recovering/Resolving]
  - Deafness [Recovering/Resolving]
  - Vestibular disorder [Recovering/Resolving]
  - Gait disturbance [Recovering/Resolving]
  - Vertigo positional [Recovering/Resolving]
  - Condition aggravated [Recovering/Resolving]
